FAERS Safety Report 5779542-2 (Version None)
Quarter: 2008Q2

REPORT INFORMATION
  Report Type: 
  Country: None (occurrence: None)
  Receive Date: 20080619
  Receipt Date: 20070809
  Transmission Date: 20081010
  Serious: No
  Sender: FDA-Public Use
  Company Number: US-ASTRAZENECA-2007UW19336

PATIENT
  Age: 78 Year
  Sex: Female
  Weight: 68 kg

DRUGS (5)
  1. ATACAND [Suspect]
     Indication: DYSLIPIDAEMIA
     Route: 048
     Dates: start: 20070808
  2. ATENOLOL [Concomitant]
  3. AMLODIPINE [Concomitant]
  4. CATAPRES-TTS-1 [Concomitant]
  5. SYNTHROID [Concomitant]

REACTIONS (5)
  - FATIGUE [None]
  - HYPERTENSION [None]
  - INSOMNIA [None]
  - NIGHT SWEATS [None]
  - PHARYNGOLARYNGEAL PAIN [None]
